FAERS Safety Report 5038355-X (Version None)
Quarter: 2006Q2

REPORT INFORMATION
  Report Type: 
  Country: None (occurrence: None)
  Receive Date: 20060627
  Receipt Date: 20060627
  Transmission Date: 20061013
  Serious: No
  Sender: FDA-Public Use
  Company Number: None

PATIENT
  Sex: Male
  Weight: 73.4827 kg

DRUGS (1)
  1. VANCOMYCIN [Suspect]
     Dosage: 1.5 GM IV BID
     Route: 042

REACTIONS (3)
  - ANGIONEUROTIC OEDEMA [None]
  - FALL [None]
  - RASH [None]
